FAERS Safety Report 9382500 (Version 1)
Quarter: 2013Q3

REPORT INFORMATION
  Report Type: Spontaneous
  Country: DE (occurrence: DE)
  Receive Date: 20130703
  Receipt Date: 20130703
  Transmission Date: 20140515
  Serious: Yes (Other)
  Sender: FDA-Public Use
  Company Number: DE-UCBSA-090737

PATIENT
  Sex: Female

DRUGS (2)
  1. CIMZIA [Suspect]
  2. CORTISON [Concomitant]
     Dosage: 5 MG

REACTIONS (2)
  - Rash generalised [Unknown]
  - Pruritus [Unknown]
